FAERS Safety Report 6782528-2 (Version None)
Quarter: 2010Q2

REPORT INFORMATION
  Report Type: 
  Country: None (occurrence: None)
  Receive Date: 20100621
  Receipt Date: 20100609
  Transmission Date: 20101027
  Serious: Yes (Death)
  Sender: FDA-Public Use
  Company Number: US-NOVOPROD-310112

PATIENT
  Age: 54 Year
  Sex: Male
  Weight: 78 kg

DRUGS (1)
  1. NOVOSEVEN RT [Suspect]
     Indication: POST PROCEDURAL HAEMORRHAGE
     Dosage: 5000 UG, BID
     Route: 042
     Dates: start: 20100217, end: 20100217

REACTIONS (5)
  - COAGULOPATHY [None]
  - ENDOCARDITIS [None]
  - RENAL FAILURE CHRONIC [None]
  - SEPSIS [None]
  - VITAMIN K DEFICIENCY [None]
